FAERS Safety Report 15757028 (Version 5)
Quarter: 2020Q3

REPORT INFORMATION
  Report Type: Other
  Country: US (occurrence: US)
  Receive Date: 20181224
  Receipt Date: 20200707
  Transmission Date: 20201102
  Serious: Yes (Other)
  Sender: FDA-Public Use
  Company Number: US-INTERCEPT-PMOCA2018002026

PATIENT
  Sex: Female

DRUGS (2)
  1. ATORVASTATIN [Suspect]
     Active Substance: ATORVASTATIN
  2. OCALIVA [Suspect]
     Active Substance: OBETICHOLIC ACID
     Indication: PRIMARY BILIARY CHOLANGITIS
     Dosage: 5 MG, QD
     Route: 048
     Dates: start: 20161103, end: 20190513

REACTIONS (7)
  - Dyspnoea [Unknown]
  - Nasopharyngitis [Unknown]
  - Lung neoplasm malignant [Not Recovered/Not Resolved]
  - Breast cancer metastatic [Not Recovered/Not Resolved]
  - Pruritus [Recovered/Resolved]
  - Malignant neoplasm of spinal cord [Not Recovered/Not Resolved]
  - Gait disturbance [Unknown]
